FAERS Safety Report 7314055-8 (Version None)
Quarter: 2011Q1

REPORT INFORMATION
  Report Type: 
  Country: None (occurrence: None)
  Receive Date: 20110225
  Receipt Date: 20100421
  Transmission Date: 20110831
  Serious: No
  Sender: FDA-Public Use
  Company Number: -MYLANLABS-2010S1006837

PATIENT
  Age: 39 Year
  Sex: Female

DRUGS (4)
  1. SOTRET [Suspect]
     Route: 048
  2. SOTRET [Suspect]
     Route: 048
  3. AMNESTEEM [Suspect]
     Indication: ACNE CYSTIC
     Route: 048
     Dates: end: 20100401
  4. SOTRET [Suspect]
     Indication: ACNE CYSTIC
     Route: 048

REACTIONS (1)
  - HEADACHE [None]
